FAERS Safety Report 7150884-1 (Version None)
Quarter: 2010Q4

REPORT INFORMATION
  Report Type: 
  Country: None (occurrence: None)
  Receive Date: 20101207
  Receipt Date: 20101207
  Transmission Date: 20110411
  Serious: Yes (Hospitalization)
  Sender: FDA-Public Use
  Company Number: None

PATIENT
  Sex: Female
  Weight: 65 kg

DRUGS (2)
  1. CISPLATIN [Suspect]
     Dates: start: 20101108
  2. TAXOL [Suspect]
     Dates: start: 20101108

REACTIONS (1)
  - PULMONARY EMBOLISM [None]
